FAERS Safety Report 23695790 (Version 2)
Quarter: 2024Q2

REPORT INFORMATION
  Report Type: Other
  Country: US (occurrence: None)
  Receive Date: 20240402
  Receipt Date: 20240417
  Transmission Date: 20240715
  Serious: Yes (Other)
  Sender: FDA-Public Use
  Company Number: US-ROCHE-3253621

PATIENT
  Age: 41 Year
  Sex: Female

DRUGS (12)
  1. OCREVUS [Suspect]
     Active Substance: OCRELIZUMAB
     Indication: Multiple sclerosis
     Dosage: DATE OF TREATMENT:14/MAR/2022
     Route: 042
     Dates: start: 201810
  2. OCREVUS [Suspect]
     Active Substance: OCRELIZUMAB
     Route: 042
     Dates: start: 2019
  3. VITAMIN B12 [Concomitant]
     Active Substance: CYANOCOBALAMIN
  4. CALTRATE [Concomitant]
     Active Substance: CALCIUM CARBONATE
  5. MAGNESIUM L-ASCORBYL-2-PHOSPHATE [Concomitant]
  6. ZINC [Concomitant]
     Active Substance: PYRITHIONE ZINC\ZINC\ZINC CHLORIDE
  7. BACLOFEN [Concomitant]
     Active Substance: BACLOFEN
  8. STRATTERA [Concomitant]
     Active Substance: ATOMOXETINE HYDROCHLORIDE
  9. ADDERALL [Concomitant]
     Active Substance: AMPHETAMINE ASPARTATE\AMPHETAMINE SULFATE\DEXTROAMPHETAMINE SACCHARATE\DEXTROAMPHETAMINE SULFATE
  10. IBUPROFEN [Concomitant]
     Active Substance: IBUPROFEN
  11. ACETAMINOPHEN [Concomitant]
     Active Substance: ACETAMINOPHEN
  12. LORATADINE [Concomitant]
     Active Substance: LORATADINE

REACTIONS (10)
  - Fall [Unknown]
  - Ankle fracture [Not Recovered/Not Resolved]
  - Ankle fracture [Recovered/Resolved]
  - Movement disorder [Recovering/Resolving]
  - Staphylococcal infection [Recovered/Resolved]
  - Nasal abscess [Recovered/Resolved]
  - Subcutaneous abscess [Recovered/Resolved]
  - Fall [Unknown]
  - Muscle atrophy [Not Recovered/Not Resolved]
  - Bone loss [Not Recovered/Not Resolved]

NARRATIVE: CASE EVENT DATE: 20210101
